FAERS Safety Report 4779559-0 (Version None)
Quarter: 2005Q3

REPORT INFORMATION
  Report Type: 
  Country: None (occurrence: None)
  Receive Date: 20050923
  Receipt Date: 20050823
  Transmission Date: 20060218
  Serious: Yes (Hospitalization)
  Sender: FDA-Public Use
  Company Number: WAES 0507USA01433

PATIENT
  Age: 43 Year
  Sex: Female

DRUGS (5)
  1. VYTORIN [Suspect]
     Indication: BLOOD CHOLESTEROL INCREASED
     Dosage: 10-10 MG/ DAILY/ PO
     Route: 048
     Dates: start: 20041206, end: 20050630
  2. VYTORIN [Suspect]
     Indication: LIPIDS INCREASED
     Dosage: 10-10 MG/ DAILY/ PO
     Route: 048
     Dates: start: 20041206, end: 20050630
  3. ACTOS [Concomitant]
  4. ALTACE [Concomitant]
  5. ORABET (METFORMIN HYDROCHLORIDE) [Concomitant]

REACTIONS (9)
  - ABDOMINAL PAIN [None]
  - CHEST PAIN [None]
  - DIZZINESS [None]
  - HAEMATURIA [None]
  - NAUSEA [None]
  - PANCREATITIS [None]
  - RASH [None]
  - VIRAL INFECTION [None]
  - VOMITING [None]
